FAERS Safety Report 24392911 (Version 1)
Quarter: 2024Q4

REPORT INFORMATION
  Report Type: Spontaneous
  Country: IN (occurrence: IN)
  Receive Date: 20241003
  Receipt Date: 20241003
  Transmission Date: 20250115
  Serious: Yes (Death, Other)
  Sender: NOVARTIS
  Company Number: IN-HALEON-2199666

PATIENT
  Sex: Male

DRUGS (2)
  1. TERBINAFINE [Suspect]
     Active Substance: TERBINAFINE
     Indication: Dermatophytosis
     Dosage: UNK
     Route: 065
  2. ITRACONAZOLE [Suspect]
     Active Substance: ITRACONAZOLE
     Indication: Dermatophytosis
     Dosage: UNK
     Route: 065

REACTIONS (2)
  - Cutaneous vasculitis [Fatal]
  - Multiple organ dysfunction syndrome [Fatal]
